FAERS Safety Report 7970695-4 (Version None)
Quarter: 2011Q4

REPORT INFORMATION
  Report Type: 
  Country: None (occurrence: None)
  Receive Date: 20111212
  Receipt Date: 20111202
  Transmission Date: 20120403
  Serious: Yes (Death)
  Sender: FDA-Public Use
  Company Number: GB-GLAXOSMITHKLINE-B0764103A

PATIENT
  Age: 70 Year
  Sex: Male
  Weight: 95 kg

DRUGS (1)
  1. ORLISTAT [Suspect]
     Indication: OVERWEIGHT
     Dosage: 360MG PER DAY
     Route: 048
     Dates: start: 20060103, end: 20070726

REACTIONS (4)
  - LETHARGY [None]
  - DECREASED APPETITE [None]
  - LIVER FUNCTION TEST ABNORMAL [None]
  - GALLBLADDER CANCER [None]
